FAERS Safety Report 8499716-X (Version None)
Quarter: 2012Q3

REPORT INFORMATION
  Report Type: 
  Country: None (occurrence: None)
  Receive Date: 20120703
  Receipt Date: 20120703
  Transmission Date: 20120928
  Serious: Yes (Hospitalization, Other)
  Sender: FDA-Public Use
  Company Number: None

PATIENT
  Sex: Male
  Weight: 73.9363 kg

DRUGS (1)
  1. SUTENT [Suspect]
     Dosage: 50MG DAILY FOR 5 WEEKS THEN OFF ORAL
     Route: 048
     Dates: start: 20120113, end: 20120504

REACTIONS (3)
  - PROTEINURIA [None]
  - FLUID RETENTION [None]
  - RENAL IMPAIRMENT [None]
